FAERS Safety Report 5293073-8 (Version None)
Quarter: 2007Q2

REPORT INFORMATION
  Report Type: 
  Country: None (occurrence: None)
  Receive Date: 20070411
  Receipt Date: 20070404
  Transmission Date: 20071010
  Serious: Yes (Death)
  Sender: FDA-Public Use
  Company Number: PHRM2007FR01190

PATIENT
  Age: 22 Year
  Sex: Male

DRUGS (6)
  1. TERCIAN [Suspect]
     Dosage: 75 MG/DAY
     Route: 048
     Dates: end: 20070218
  2. TERCIAN [Suspect]
     Dosage: 100 MG/DAY
     Route: 048
     Dates: start: 20070219
  3. ATARAX /POR/ [Concomitant]
     Dosage: 100 MG/DAY
     Route: 048
  4. IMOVANE [Concomitant]
     Dosage: 7.5 MG/DAY
     Route: 048
  5. CLOZAPINE [Suspect]
     Indication: SCHIZOPHRENIA, PARANOID TYPE
     Dosage: 600 MG/DAY
     Route: 048
     Dates: end: 20070218
  6. CLOZAPINE [Suspect]
     Dosage: 800 MG/DAY
     Route: 048
     Dates: start: 20070219

REACTIONS (2)
  - CHOKING [None]
  - VOMITING [None]
